FAERS Safety Report 21631613 (Version 1)
Quarter: 2022Q4

REPORT INFORMATION
  Report Type: Spontaneous
  Country: GB (occurrence: GB)
  Receive Date: 20221123
  Receipt Date: 20221123
  Transmission Date: 20230112
  Serious: Yes (Disabling)
  Sender: FDA-Public Use
  Company Number: None

PATIENT
  Age: 82 Year
  Sex: Male
  Weight: 77 kg

DRUGS (9)
  1. CEPHALEXIN [Suspect]
     Active Substance: CEPHALEXIN
     Indication: Ill-defined disorder
     Dosage: UNK
     Route: 065
     Dates: start: 20221105
  2. ASPIRIN [Concomitant]
     Active Substance: ASPIRIN
     Indication: Ill-defined disorder
     Dosage: UNK, QD, TAKE ONE DAILY
     Route: 065
     Dates: start: 20220131
  3. ATORVASTATIN [Concomitant]
     Active Substance: ATORVASTATIN
     Indication: Ill-defined disorder
     Dosage: UNK, HS (TAKE ONE EACH NIGHT)
     Route: 065
     Dates: start: 20220211
  4. BISOPROLOL [Concomitant]
     Active Substance: BISOPROLOL
     Indication: Ill-defined disorder
     Dosage: UNK, QD (TAKE ONE IN THE MORNING )
     Route: 065
     Dates: start: 20220131
  5. FUROSEMIDE [Concomitant]
     Active Substance: FUROSEMIDE
     Indication: Ill-defined disorder
     Dosage: UNK, BID, (TAKE ONE EACH MORNING AND ONE AT 2PM)
     Route: 065
     Dates: start: 20220428
  6. LANSOPRAZOLE [Concomitant]
     Active Substance: LANSOPRAZOLE
     Indication: Ill-defined disorder
     Dosage: UNK, QD TAKE ONE EACH MORNING (ON DAPT)
     Route: 065
     Dates: start: 20220211
  7. RAMIPRIL [Concomitant]
     Active Substance: RAMIPRIL
     Indication: Ill-defined disorder
     Dosage: UNK, ONE TO BE TAKEN EACH MORNING
     Route: 065
     Dates: start: 20220211
  8. SPIRONOLACTONE [Concomitant]
     Active Substance: SPIRONOLACTONE
     Indication: Ill-defined disorder
     Dosage: UNK, QD, (TAKE ONE EACH MORNING)
     Route: 065
     Dates: start: 20220211
  9. TICAGRELOR [Concomitant]
     Active Substance: TICAGRELOR
     Indication: Ill-defined disorder
     Dosage: UNK, BID TAKE ONE TWICE DAILY
     Route: 065
     Dates: start: 20220211

REACTIONS (1)
  - Skin reaction [Recovered/Resolved]

NARRATIVE: CASE EVENT DATE: 20221105
